FAERS Safety Report 13982796 (Version 7)
Quarter: 2018Q1

REPORT INFORMATION
  Report Type: Spontaneous
  Country: IL (occurrence: IL)
  Receive Date: 20170918
  Receipt Date: 20180312
  Transmission Date: 20180508
  Serious: Yes (Congenital Anomaly, Other)
  Sender: FDA-Public Use
  Company Number: IL-B.I. PHARMACEUTICALS,INC./RIDGEFIELD-2017-BI-050250

PATIENT
  Sex: Female
  Weight: 3.64 kg

DRUGS (1)
  1. JARDIANCE DUO [Suspect]
     Active Substance: EMPAGLIFLOZIN\METFORMIN HYDROCHLORIDE
     Indication: TYPE 2 DIABETES MELLITUS
     Dosage: 5/850
     Route: 048
     Dates: start: 201705, end: 20170530

REACTIONS (4)
  - Congenital hydrocephalus [Unknown]
  - Cyst [Unknown]
  - Hydrocephalus [Unknown]
  - Macrocephaly [Unknown]

NARRATIVE: CASE EVENT DATE: 20170913
